FAERS Safety Report 9145350 (Version 4)
Quarter: 2013Q3

REPORT INFORMATION
  Report Type: Spontaneous
  Country: GB (occurrence: GB)
  Receive Date: 20130307
  Receipt Date: 20130711
  Transmission Date: 20140515
  Serious: Yes (Other)
  Sender: FDA-Public Use
  Company Number: GB-BAYER-2013-025390

PATIENT
  Age: 48 Year
  Sex: Female
  Weight: 110 kg

DRUGS (5)
  1. MIRENA [Suspect]
     Indication: CONTRACEPTION
     Dosage: 20 MCG/24HR, CONT
     Route: 015
     Dates: start: 20130102, end: 201305
  2. MIRENA [Suspect]
     Indication: MENORRHAGIA
  3. CO-CODAMOL [Concomitant]
     Dosage: 30/500
  4. FERROUS FUMARATE [Concomitant]
     Dosage: UNK
     Dates: start: 2011
  5. B12 [Concomitant]
     Dosage: 5000
     Dates: start: 201210

REACTIONS (12)
  - Genital haemorrhage [Not Recovered/Not Resolved]
  - Device dislocation [None]
  - Pelvic pain [Not Recovered/Not Resolved]
  - Migraine [Not Recovered/Not Resolved]
  - Vertigo [Not Recovered/Not Resolved]
  - Adnexa uteri pain [None]
  - Subcutaneous abscess [None]
  - Emotional distress [None]
  - Anxiety [None]
  - Uterine pain [Not Recovered/Not Resolved]
  - Ovarian cyst [None]
  - Uterine leiomyoma [None]
